FAERS Safety Report 20905677 (Version 1)
Quarter: 2022Q2

REPORT INFORMATION
  Report Type: Spontaneous
  Country: GB (occurrence: None)
  Receive Date: 20220601
  Receipt Date: 20220601
  Transmission Date: 20220720
  Serious: No
  Sender: FDA-Public Use
  Company Number: None

PATIENT
  Age: 37 Year
  Sex: Female

DRUGS (2)
  1. NEXPLANON [Suspect]
     Active Substance: ETONOGESTREL
     Indication: Contraception
     Dosage: OTHER QUANTITY : 1 IMPLANT;?
  2. CABERGOLINE [Concomitant]
     Active Substance: CABERGOLINE

REACTIONS (2)
  - Loss of libido [None]
  - Device monitoring procedure not performed [None]
